FAERS Safety Report 25468294 (Version 1)
Quarter: 2025Q2

REPORT INFORMATION
  Report Type: Spontaneous
  Country: US (occurrence: None)
  Receive Date: 20250621
  Receipt Date: 20250621
  Transmission Date: 20250717
  Serious: Yes (Hospitalization)
  Sender: FDA-CTU
  Company Number: None

PATIENT
  Age: 71 Year
  Sex: Female
  Weight: 52.65 kg

DRUGS (13)
  1. ARGININE [Suspect]
     Active Substance: ARGININE
     Indication: Metastases to central nervous system
  2. MEMANTINE [Concomitant]
     Active Substance: MEMANTINE
     Dates: start: 20250515
  3. DEXAMETHASONE [Concomitant]
     Active Substance: DEXAMETHASONE
     Dates: start: 20250508, end: 20250610
  4. TRAMADOL [Concomitant]
     Active Substance: TRAMADOL
     Dates: start: 20250503
  5. CETIRIZINE HCL [Concomitant]
     Active Substance: CETIRIZINE HYDROCHLORIDE
     Dates: start: 20200514
  6. ERGOCALCIFEROL [Concomitant]
     Active Substance: ERGOCALCIFEROL
     Dates: start: 20250315
  7. MELOXICAM [Concomitant]
     Active Substance: MELOXICAM
     Dates: start: 20250107, end: 20250430
  8. INSULIN GLARGINE-YFGN [Concomitant]
     Active Substance: INSULIN GLARGINE-YFGN
     Dates: start: 20250614
  9. INSULIN LISPRO [Concomitant]
     Active Substance: INSULIN LISPRO
     Dates: start: 20250614
  10. SITAGLIPTIN [Concomitant]
     Active Substance: SITAGLIPTIN
     Dates: start: 20250616, end: 20250617
  11. ONDANSETRON [Concomitant]
     Active Substance: ONDANSETRON
     Dates: start: 20250528, end: 20250610
  12. DIPHENHYDRAMINE [Concomitant]
     Active Substance: DIPHENHYDRAMINE
     Dates: start: 20250619
  13. TRIAMCINOLONE [Concomitant]
     Active Substance: TRIAMCINOLONE

REACTIONS (4)
  - Leukocytosis [None]
  - Dyspnoea [None]
  - Rash maculo-papular [None]
  - Rash pruritic [None]

NARRATIVE: CASE EVENT DATE: 20250619
